FAERS Safety Report 4404139-6 (Version None)
Quarter: 2004Q3

REPORT INFORMATION
  Report Type: 
  Country: None (occurrence: None)
  Receive Date: 20040719
  Receipt Date: 20040604
  Transmission Date: 20050211
  Serious: Yes (Other)
  Sender: FDA-Public Use
  Company Number: 8157

PATIENT
  Sex: Female

DRUGS (7)
  1. METHOTREXATE [Suspect]
  2. PREMARIN [Suspect]
  3. AUGMENTIN '250' [Suspect]
  4. CO-DYDRAMOL [Suspect]
  5. FLUOXETINE [Suspect]
  6. HUMIRA [Suspect]
     Dosage: 40 MG FORTNIGHTLY SC
     Route: 058
  7. ROFECOXIB [Suspect]

REACTIONS (1)
  - RETINAL HAEMORRHAGE [None]
